FAERS Safety Report 4520394-6 (Version None)
Quarter: 2004Q4

REPORT INFORMATION
  Report Type: 
  Country: None (occurrence: None)
  Receive Date: 20041206
  Receipt Date: 20041206
  Transmission Date: 20050328
  Serious: Yes (Hospitalization, Disabling)
  Sender: FDA-Public Use
  Company Number: None

PATIENT
  Age: 74 Year
  Sex: Female
  Weight: 99.7913 kg

DRUGS (2)
  1. VIOXX [Suspect]
     Indication: ARTHRALGIA
     Dosage: 50MG  ORAL
     Route: 048
     Dates: start: 20031005, end: 20040410
  2. VIOXX [Suspect]
     Dosage: 25  MG ORAL
     Route: 048

REACTIONS (7)
  - DIFFICULTY IN WALKING [None]
  - GOUT [None]
  - LIGAMENT INJURY [None]
  - OEDEMA PERIPHERAL [None]
  - TENDON DISORDER [None]
  - UPPER RESPIRATORY TRACT INFECTION [None]
  - URINARY INCONTINENCE [None]
